FAERS Safety Report 26079155 (Version 1)
Quarter: 2025Q4

REPORT INFORMATION
  Report Type: Spontaneous
  Country: US (occurrence: US)
  Receive Date: 20251123
  Receipt Date: 20251123
  Transmission Date: 20260118
  Serious: No
  Sender: GALPHARM INTERNATIONAL
  Company Number: US-PERRIGO-25US006732

PATIENT
  Age: 26 Year
  Sex: Female
  Weight: 45.805 kg

DRUGS (6)
  1. OPILL [Suspect]
     Active Substance: NORGESTREL
     Indication: Oral contraception
     Dosage: 0.075 MG, QD
     Route: 048
     Dates: start: 20250302, end: 20250501
  2. OPILL [Suspect]
     Active Substance: NORGESTREL
     Dosage: 0.075 MG, TWICE
     Route: 048
     Dates: start: 20250503, end: 20250503
  3. OPILL [Suspect]
     Active Substance: NORGESTREL
     Dosage: 0.075 MG, QD
     Route: 048
     Dates: start: 20250504, end: 20250514
  4. OPILL [Suspect]
     Active Substance: NORGESTREL
     Dosage: 0.075 MG, QD
     Route: 048
     Dates: start: 20250519
  5. PLAN B [Concomitant]
     Active Substance: LEVONORGESTREL
     Indication: Post coital contraception
     Dosage: 1 TABLET, SINGLE
     Route: 048
     Dates: start: 20250504, end: 20250504
  6. PLAN B [Concomitant]
     Active Substance: LEVONORGESTREL
     Dosage: 1 TABLET, SINGLE
     Route: 048
     Dates: start: 20250520, end: 20250520

REACTIONS (5)
  - Intermenstrual bleeding [Recovered/Resolved]
  - Menstruation delayed [Unknown]
  - Product dose omission issue [Recovered/Resolved]
  - Intentional product use issue [Unknown]
  - Intentional product use issue [Unknown]

NARRATIVE: CASE EVENT DATE: 20250301
